FAERS Safety Report 9447934 (Version 1)
Quarter: 2013Q3

REPORT INFORMATION
  Report Type: Spontaneous
  Country: CN (occurrence: None)
  Receive Date: 20130806
  Receipt Date: 20130806
  Transmission Date: 20140515
  Serious: Yes (Other)
  Sender: FDA-Public Use
  Company Number: 2013P1013773

PATIENT
  Age: 45 Year
  Sex: Male

DRUGS (2)
  1. GENTAMICIN [Suspect]
     Indication: INFECTION PROPHYLAXIS
     Route: 061
     Dates: start: 2009
  2. GENTAMICIN [Suspect]
     Route: 061
     Dates: start: 2009

REACTIONS (3)
  - Peritonitis [None]
  - Mycobacterium abscessus infection [None]
  - Catheter site infection [None]
